FAERS Safety Report 23729221 (Version 1)
Quarter: 2024Q2

REPORT INFORMATION
  Report Type: Spontaneous
  Country: US (occurrence: US)
  Receive Date: 20240410
  Receipt Date: 20240410
  Transmission Date: 20240715
  Serious: Yes (Disabling)
  Sender: FDA-Public Use
  Company Number: US-BIOGEN-2024BI01259334

PATIENT
  Sex: Female

DRUGS (1)
  1. VUMERITY [Suspect]
     Active Substance: DIROXIMEL FUMARATE
     Indication: Product used for unknown indication
     Route: 050

REACTIONS (5)
  - Cerebral atrophy [Unknown]
  - Memory impairment [Unknown]
  - Fall [Recovered/Resolved]
  - Muscle strain [Unknown]
  - Back injury [Unknown]
